FAERS Safety Report 18094986 (Version 2)
Quarter: 2020Q4

REPORT INFORMATION
  Report Type: Spontaneous
  Country: US (occurrence: US)
  Receive Date: 20200731
  Receipt Date: 20201020
  Transmission Date: 20210113
  Serious: No
  Sender: FDA-Public Use
  Company Number: US-GLAXOSMITHKLINE-US2020143377

PATIENT
  Age: 67 Year
  Sex: Female

DRUGS (1)
  1. TRELEGY ELLIPTA [Suspect]
     Active Substance: FLUTICASONE FUROATE\UMECLIDINIUM BROMIDE\VILANTEROL TRIFENATATE
     Indication: PRODUCT USED FOR UNKNOWN INDICATION
     Dosage: UNK, 1D
     Route: 055
     Dates: start: 2019

REACTIONS (3)
  - Product complaint [Unknown]
  - Wrong technique in device usage process [Unknown]
  - Underdose [Unknown]

NARRATIVE: CASE EVENT DATE: 202007
